FAERS Safety Report 8919392 (Version 3)
Quarter: 2014Q2

REPORT INFORMATION
  Report Type: Spontaneous
  Country: US (occurrence: US)
  Receive Date: 20121121
  Receipt Date: 20140410
  Transmission Date: 20141212
  Serious: Yes (Hospitalization, Other)
  Sender: FDA-Public Use
  Company Number: US-BAYER-2012-121274

PATIENT
  Age: 47 Year
  Sex: Female
  Weight: 67.12 kg

DRUGS (8)
  1. OCELLA [Suspect]
     Dosage: UNK
     Dates: start: 20100504, end: 20110226
  2. YASMIN [Suspect]
  3. E MYCIN [Concomitant]
     Indication: OROPHARYNGEAL PAIN
     Dosage: 500 MG, BID
     Route: 048
  4. TOPAMAX [Concomitant]
  5. PERCOCET [Concomitant]
  6. ZOFRAN [Concomitant]
  7. ANCEF [Concomitant]
  8. CIPRO [Concomitant]

REACTIONS (9)
  - Bile duct obstruction [None]
  - Cholecystitis chronic [None]
  - Pain [None]
  - Injury [None]
  - General physical health deterioration [None]
  - Anxiety [None]
  - Anhedonia [None]
  - Emotional distress [None]
  - Pain [None]
